FAERS Safety Report 20495958 (Version 5)
Quarter: 2022Q3

REPORT INFORMATION
  Report Type: Spontaneous
  Country: JP (occurrence: JP)
  Receive Date: 20220221
  Receipt Date: 20220728
  Transmission Date: 20221027
  Serious: Yes (Life-Threatening, Hospitalization, Other)
  Sender: FDA-Public Use
  Company Number: JP-GSKNCCC-Case-01422500_AE-54851

PATIENT

DRUGS (2)
  1. SOTROVIMAB [Suspect]
     Active Substance: SOTROVIMAB
     Indication: COVID-19
     Dosage: 500 MG/50ML/30MIN
     Route: 041
     Dates: start: 20220210, end: 20220210
  2. VEKLURY [Concomitant]
     Active Substance: REMDESIVIR
     Dosage: 200 MG
     Route: 041
     Dates: start: 20220210, end: 20220214

REACTIONS (7)
  - COVID-19 pneumonia [Unknown]
  - Hypoxia [Recovering/Resolving]
  - Respiratory disorder [Recovering/Resolving]
  - Oxygen therapy [Recovering/Resolving]
  - Respiration abnormal [Recovered/Resolved]
  - Pruritus [Unknown]
  - Hypersensitivity [Unknown]

NARRATIVE: CASE EVENT DATE: 20220210
